FAERS Safety Report 8986317 (Version 1)
Quarter: 2012Q4

REPORT INFORMATION
  Report Type: Spontaneous
  Country: US (occurrence: None)
  Receive Date: 20121219
  Receipt Date: 20121219
  Transmission Date: 20130627
  Serious: Yes (Hospitalization)
  Sender: FDA-Public Use
  Company Number: None

PATIENT
  Age: 51 Year
  Sex: Female

DRUGS (3)
  1. VICTRELIS [Suspect]
     Indication: HEPATITIS C
     Dosage: 800 mg q8hours po
     Route: 048
     Dates: start: 20120918
  2. RIBASPHERE [Suspect]
     Dosage: 600mg bid po
     Route: 048
     Dates: start: 20120822
  3. PEGASYS [Suspect]
     Dosage: 180mcg subq qweekly
     Route: 058
     Dates: start: 20120822

REACTIONS (1)
  - Malaise [None]
